FAERS Safety Report 8391504-8 (Version None)
Quarter: 2012Q2

REPORT INFORMATION
  Report Type: 
  Country: None (occurrence: None)
  Receive Date: 20120515
  Receipt Date: 20120504
  Transmission Date: 20120825
  Serious: Yes (Hospitalization, Other)
  Sender: FDA-Public Use
  Company Number: WAES 1203USA02792

PATIENT
  Age: 79 Year
  Sex: Male

DRUGS (13)
  1. PREDNISOLONE [Concomitant]
  2. AMLODIPINE [Suspect]
     Dosage: PO
     Route: 046
     Dates: start: 20080319, end: 20120308
  3. GLIMEPIRIDE [Concomitant]
  4. METOPROLOL TARTRATE [Concomitant]
  5. SAXAGLIPTIN [Concomitant]
  6. PLACEBO [Suspect]
     Indication: ACUTE CORONARY SYNDROME
     Dosage: PO
     Route: 048
     Dates: start: 20080319
  7. ASPIRIN [Concomitant]
  8. TAB BLINDED THERAPY [Suspect]
     Indication: ACUTE CORONARY SYNDROME
     Dosage: PO
     Route: 048
     Dates: start: 20080319
  9. CALCIUM (UNSPECIFIED) [Concomitant]
  10. RAMIPRIL [Concomitant]
  11. ZOCOR [Suspect]
     Dosage: 40 MG/DAILY, PO
     Route: 048
     Dates: start: 20100601, end: 20120308
  12. TAB BLINDED THERAPY [Suspect]
     Indication: ACUTE CORONARY SYNDROME
     Dosage: PO
     Route: 048
     Dates: start: 20080319
  13. VITAMIN D (UNSPECIFIED) [Concomitant]

REACTIONS (3)
  - RENAL CYST [None]
  - ASPARTATE AMINOTRANSFERASE INCREASED [None]
  - BLOOD CREATINE PHOSPHOKINASE INCREASED [None]
